FAERS Safety Report 14340936 (Version 1)
Quarter: 2018Q1

REPORT INFORMATION
  Report Type: Spontaneous
  Country: GB (occurrence: GB)
  Receive Date: 20180102
  Receipt Date: 20180102
  Transmission Date: 20180509
  Serious: Yes (Death)
  Sender: FDA-Public Use
  Company Number: GB-INSYS THERAPEUTICS, INC-INS201712-000781

PATIENT
  Age: 40 Year
  Sex: Male

DRUGS (13)
  1. BUTYRYLFENTANYL [Suspect]
     Active Substance: BUTYRFENTANYL
  2. CODEINE [Suspect]
     Active Substance: CODEINE
  3. BENZOYLECGONINE [Suspect]
     Active Substance: BENZOYLECGONINE
  4. FENTANYL. [Suspect]
     Active Substance: FENTANYL
     Indication: PRODUCT USED FOR UNKNOWN INDICATION
  5. DIAZEPAM. [Suspect]
     Active Substance: DIAZEPAM
  6. COCAINE [Suspect]
     Active Substance: COCAINE
  7. NORFENTANYL [Suspect]
     Active Substance: NORFENTANYL
  8. CARFENTANIL [Suspect]
     Active Substance: CARFENTANIL
  9. PARACETAMOL [Suspect]
     Active Substance: ACETAMINOPHEN
  10. MIRTAZAPINE. [Suspect]
     Active Substance: MIRTAZAPINE
  11. COCAETHYLENE [Suspect]
     Active Substance: COCAETHYLENE
  12. DIHYDROCODEINE [Suspect]
     Active Substance: DIHYDROCODEINE
  13. GABAPENTIN. [Suspect]
     Active Substance: GABAPENTIN

REACTIONS (2)
  - Toxicity to various agents [Fatal]
  - Depressed level of consciousness [Fatal]

NARRATIVE: CASE EVENT DATE: 2017
